FAERS Safety Report 7215823-3 (Version None)
Quarter: 2011Q1

REPORT INFORMATION
  Report Type: 
  Country: None (occurrence: None)
  Receive Date: 20110107
  Receipt Date: 20100719
  Transmission Date: 20110831
  Serious: Yes (Hospitalization, Other)
  Sender: FDA-Public Use
  Company Number: DE-CELGENEUS-062-21880-10100694

PATIENT
  Age: 58 Year
  Sex: Female

DRUGS (13)
  1. FORTECORTIN [Concomitant]
     Route: 065
     Dates: start: 20071220
  2. REVLIMID [Suspect]
     Route: 048
     Dates: start: 20071220, end: 20090321
  3. REVLIMID [Suspect]
     Route: 048
     Dates: start: 20090401
  4. AREDIA [Concomitant]
     Indication: MULTIPLE MYELOMA
     Route: 065
  5. FORTECORTIN [Concomitant]
     Route: 065
     Dates: start: 20090401
  6. ASPIRIN [Concomitant]
     Route: 065
  7. REVLIMID [Suspect]
     Indication: MULTIPLE MYELOMA
     Route: 048
     Dates: start: 20071121, end: 20071212
  8. FORTECORTIN [Concomitant]
     Indication: MULTIPLE MYELOMA
     Route: 065
     Dates: start: 20071121, end: 20071212
  9. FORTECORTIN [Concomitant]
     Route: 065
     Dates: start: 20080411
  10. AMPHOTERICIN B [Concomitant]
     Route: 065
  11. COTRIM [Concomitant]
     Route: 065
     Dates: start: 20081201
  12. OMEP [Concomitant]
     Route: 065
  13. COTRIM [Concomitant]
     Indication: BRONCHITIS
     Route: 065

REACTIONS (11)
  - CHEST PAIN [None]
  - KERATITIS HERPETIC [None]
  - HYPERHIDROSIS [None]
  - LOSS OF CONSCIOUSNESS [None]
  - PANCYTOPENIA [None]
  - MULTIPLE MYELOMA [None]
  - BRONCHITIS [None]
  - DIARRHOEA [None]
  - THROMBOPHLEBITIS SEPTIC [None]
  - HYPOKALAEMIA [None]
  - FATIGUE [None]
